FAERS Safety Report 12315086 (Version 1)
Quarter: 2016Q2

REPORT INFORMATION
  Report Type: Report from Study
  Country: US (occurrence: US)
  Receive Date: 20160428
  Receipt Date: 20160428
  Transmission Date: 20160815
  Serious: Yes (Other)
  Sender: FDA-Public Use
  Company Number: US-MALLINCKRODT-T201504710

PATIENT
  Age: 13 Year
  Sex: Male

DRUGS (3)
  1. ZOLOFT [Suspect]
     Active Substance: SERTRALINE HYDROCHLORIDE
     Indication: MAJOR DEPRESSION
     Dosage: 50 MG, TOOK 30 TABLETS (1500 MG)
     Route: 048
     Dates: start: 20131209, end: 20131209
  2. ZOLOFT [Suspect]
     Active Substance: SERTRALINE HYDROCHLORIDE
     Dosage: 50 MG, ONE DAILY
     Route: 065
  3. METHYLIN [Suspect]
     Active Substance: METHYLPHENIDATE HYDROCHLORIDE
     Indication: PRODUCT USED FOR UNKNOWN INDICATION
     Dosage: TOOK 10 PILLS (UNKNOWN DOSAGE)
     Route: 048
     Dates: start: 20131209, end: 20131209

REACTIONS (2)
  - Intentional overdose [Unknown]
  - Drug diversion [Unknown]

NARRATIVE: CASE EVENT DATE: 20131209
